FAERS Safety Report 5577624-1 (Version None)
Quarter: 2007Q4

REPORT INFORMATION
  Report Type: 
  Country: None (occurrence: None)
  Receive Date: 20071231
  Receipt Date: 20071221
  Transmission Date: 20080405
  Serious: Yes (Other)
  Sender: FDA-Public Use
  Company Number: PHEH2007US15188

PATIENT
  Age: 55 Year
  Sex: Male

DRUGS (5)
  1. ZOMETA [Suspect]
     Indication: MULTIPLE MYELOMA
     Dosage: 4 MG MONTHLY
     Dates: start: 20020601, end: 20060612
  2. THALIDOMIDE [Suspect]
     Indication: MULTIPLE MYELOMA
     Dosage: 200 MG, QD
     Route: 048
     Dates: start: 20040220, end: 20070322
  3. THALIDOMIDE [Suspect]
     Dosage: 300 MG, QD
     Route: 048
     Dates: start: 20030113, end: 20030214
  4. THALIDOMIDE [Suspect]
     Dosage: 400 MG, QD
     Route: 048
     Dates: start: 20030314, end: 20040102
  5. THALIDOMIDE [Suspect]
     Dosage: 200 MG, QD
     Route: 048
     Dates: start: 20071024

REACTIONS (11)
  - BONE DEBRIDEMENT [None]
  - BONE DISORDER [None]
  - BONE LESION [None]
  - COMPUTERISED TOMOGRAM ABNORMAL [None]
  - ERYTHEMA [None]
  - IMPAIRED HEALING [None]
  - OEDEMA [None]
  - ORAL SURGERY [None]
  - OSTEONECROSIS [None]
  - PAIN IN JAW [None]
  - SOFT TISSUE INFECTION [None]
